FAERS Safety Report 19057004 (Version 2)
Quarter: 2021Q3

REPORT INFORMATION
  Report Type: Spontaneous
  Country: US (occurrence: US)
  Receive Date: 20210325
  Receipt Date: 20210806
  Transmission Date: 20211014
  Serious: Yes (Other)
  Sender: FDA-Public Use
  Company Number: US-PFIZER INC-2021300013

PATIENT
  Age: 70 Year
  Sex: Male

DRUGS (1)
  1. RELPAX [Suspect]
     Active Substance: ELETRIPTAN HYDROBROMIDE
     Indication: HEADACHE
     Dosage: UNK

REACTIONS (8)
  - Diabetes mellitus [Unknown]
  - Illness [Unknown]
  - Back injury [Unknown]
  - Suicidal ideation [Unknown]
  - Feeling abnormal [Unknown]
  - Intracranial aneurysm [Unknown]
  - Fibromyalgia [Unknown]
  - Off label use [Unknown]
